FAERS Safety Report 24247789 (Version 1)
Quarter: 2024Q3

REPORT INFORMATION
  Report Type: Spontaneous
  Country: US (occurrence: US)
  Receive Date: 20240826
  Receipt Date: 20240826
  Transmission Date: 20241017
  Serious: No
  Sender: BAUSCH AND LOMB
  Company Number: US-BAUSCHBL-2024BNL031765

PATIENT
  Age: 69 Year
  Sex: Male

DRUGS (2)
  1. LUMIFY [Suspect]
     Active Substance: BRIMONIDINE TARTRATE
     Indication: Asthenopia
     Route: 047
     Dates: start: 20240813, end: 20240813
  2. LUMIFY [Suspect]
     Active Substance: BRIMONIDINE TARTRATE
     Indication: Product use in unapproved indication

REACTIONS (3)
  - Lacrimation increased [Recovering/Resolving]
  - Eye irritation [Recovered/Resolved]
  - Product use in unapproved indication [Unknown]

NARRATIVE: CASE EVENT DATE: 20240813
